FAERS Safety Report 15849007 (Version 2)
Quarter: 2019Q1

REPORT INFORMATION
  Report Type: Report from Study
  Country: CO (occurrence: CO)
  Receive Date: 20190121
  Receipt Date: 20190228
  Transmission Date: 20190417
  Serious: Yes (Hospitalization)
  Sender: FDA-Public Use
  Company Number: CO-ACTELION-A-CH2018-180058

PATIENT
  Age: 62 Year
  Sex: Female
  Weight: 72 kg

DRUGS (1)
  1. OPSUMIT [Suspect]
     Active Substance: MACITENTAN
     Indication: PULMONARY ARTERIAL HYPERTENSION
     Dosage: 10 MG, QD
     Route: 048
     Dates: start: 20180525, end: 20180905

REACTIONS (5)
  - Fatigue [Not Recovered/Not Resolved]
  - Angina pectoris [Not Recovered/Not Resolved]
  - Asphyxia [Not Recovered/Not Resolved]
  - Fluid retention [Not Recovered/Not Resolved]
  - N-terminal prohormone brain natriuretic peptide abnormal [Not Recovered/Not Resolved]

NARRATIVE: CASE EVENT DATE: 20180927
